FAERS Safety Report 7073741-8 (Version None)
Quarter: 2010Q4

REPORT INFORMATION
  Report Type: 
  Country: None (occurrence: None)
  Receive Date: 20101029
  Receipt Date: 20100809
  Transmission Date: 20110411
  Serious: No
  Sender: FDA-Public Use
  Company Number: A0874624A

PATIENT
  Age: 64 Year
  Sex: Male

DRUGS (5)
  1. ADVAIR DISKUS 100/50 [Suspect]
     Indication: WHEEZING
     Dosage: 1PUFF TWICE PER DAY
     Route: 055
     Dates: start: 20100726
  2. SINGULAIR [Concomitant]
  3. CLARITIN [Concomitant]
  4. LISINOPRIL [Concomitant]
  5. NAPROSYN [Concomitant]

REACTIONS (1)
  - OROPHARYNGEAL PAIN [None]
